FAERS Safety Report 5028270-X (Version None)
Quarter: 2006Q2

REPORT INFORMATION
  Report Type: 
  Country: None (occurrence: None)
  Receive Date: 20060613
  Receipt Date: 20060531
  Transmission Date: 20061013
  Serious: Yes (Hospitalization)
  Sender: FDA-Public Use
  Company Number: 225820

PATIENT
  Age: 66 Year
  Sex: Male

DRUGS (3)
  1. BEVACIZUMAB OR PLACEBO (BEVACIZUMAB) PWDR + SOLVENT, INFUSION SOLN, 10 [Suspect]
     Indication: PROSTATE CANCER
     Dosage: 15 MG/KG, Q3W, INTRAVENOUS
     Route: 042
     Dates: start: 20060419, end: 20060419
  2. DOCETAXEL (DOCETAXEL) [Suspect]
     Indication: PROSTATE CANCER
     Dosage: 75 MG/M2, INTRAVENOUS
     Route: 042
     Dates: start: 20060419, end: 20060419
  3. PREDNISONE TAB [Suspect]
     Indication: PROSTATE CANCER
     Dosage: 5 MG, BID, ORAL
     Route: 048

REACTIONS (10)
  - BLOOD CREATININE INCREASED [None]
  - DISSEMINATED INTRAVASCULAR COAGULATION [None]
  - ECCHYMOSIS [None]
  - HAEMODIALYSIS [None]
  - ORBITAL OEDEMA [None]
  - RENAL FAILURE ACUTE [None]
  - SWELLING [None]
  - SYNCOPE [None]
  - THROMBOTIC MICROANGIOPATHY [None]
  - VOMITING [None]
